FAERS Safety Report 5764909-9 (Version None)
Quarter: 2008Q2

REPORT INFORMATION
  Report Type: 
  Country: None (occurrence: None)
  Receive Date: 20080611
  Receipt Date: 20080603
  Transmission Date: 20081010
  Serious: Yes (Hospitalization, Congenital Anomaly)
  Sender: FDA-Public Use
  Company Number: A0662906A

PATIENT
  Sex: Male
  Weight: 3.2 kg

DRUGS (7)
  1. PAROXETINE HCL [Suspect]
     Indication: DEPRESSION
     Dosage: 20MG TWICE PER DAY
     Dates: start: 20050723
  2. PHENYTOIN [Concomitant]
     Dates: start: 20050723
  3. AZITHROMYCIN [Concomitant]
     Dates: start: 20060112
  4. PROMETHAZINE [Concomitant]
     Dates: start: 20060130
  5. OXYCODONE AND ACETAMINOPHEN [Concomitant]
     Dates: start: 20060721
  6. FLUCONAZOLE [Concomitant]
     Dates: start: 20060801, end: 20060803
  7. VITAMIN TAB [Concomitant]
     Dates: start: 20051101, end: 20060801

REACTIONS (4)
  - ATRIAL SEPTAL DEFECT [None]
  - CARDIAC MURMUR [None]
  - DRUG EXPOSURE DURING PREGNANCY [None]
  - PULMONARY VALVE STENOSIS [None]
